FAERS Safety Report 7121491-1 (Version None)
Quarter: 2010Q4

REPORT INFORMATION
  Report Type: 
  Country: None (occurrence: None)
  Receive Date: 20101124
  Receipt Date: 20101112
  Transmission Date: 20110411
  Serious: Yes (Hospitalization)
  Sender: FDA-Public Use
  Company Number: US-ELI_LILLY_AND_COMPANY-US201011003701

PATIENT
  Age: 62 Year
  Sex: Female

DRUGS (3)
  1. CYMBALTA [Suspect]
     Indication: DEPRESSION
     Dosage: 60 MG, UNK
  2. CYMBALTA [Interacting]
     Dosage: 90 MG, DAILY (1/D)
  3. NEURONTIN [Concomitant]
     Indication: NEUROPATHY PERIPHERAL
     Dates: end: 20100501

REACTIONS (4)
  - DRUG INTERACTION [None]
  - FALL [None]
  - HOSPITALISATION [None]
  - MALAISE [None]
